FAERS Safety Report 19885763 (Version 2)
Quarter: 2021Q4

REPORT INFORMATION
  Report Type: Other
  Country: SK (occurrence: SK)
  Receive Date: 20210927
  Receipt Date: 20211130
  Transmission Date: 20220303
  Serious: Yes (Life-Threatening, Hospitalization, Disabling, Other)
  Sender: FDA-Public Use
  Company Number: SK-BEH-2019106699

PATIENT
  Sex: Female

DRUGS (35)
  1. POTASSIUM CHLORIDE [Suspect]
     Active Substance: POTASSIUM CHLORIDE
     Indication: Product used for unknown indication
     Dosage: UNK
     Route: 064
     Dates: start: 20180314
  2. HYDROCORTISONE [Suspect]
     Active Substance: HYDROCORTISONE
     Indication: Product used for unknown indication
     Dosage: UNK
     Route: 064
     Dates: start: 20180303, end: 20180309
  3. PREDNISOLONE [Suspect]
     Active Substance: PREDNISOLONE
     Indication: Product used for unknown indication
     Dosage: UNK
     Route: 064
     Dates: start: 20180222, end: 20180227
  4. CHOLECALCIFEROL [Suspect]
     Active Substance: CHOLECALCIFEROL
     Indication: Product used for unknown indication
     Dosage: UNK
     Route: 064
     Dates: start: 20180222
  5. ETHAMSYLATE [Suspect]
     Active Substance: ETHAMSYLATE
     Indication: Product used for unknown indication
     Dosage: UNK
     Route: 064
     Dates: start: 20180222, end: 20180413
  6. FLEBOGAMMA DIF [Suspect]
     Active Substance: HUMAN IMMUNOGLOBULIN G
     Indication: Product used for unknown indication
     Dosage: UNK
     Route: 064
  7. FLEBOGAMMA DIF [Suspect]
     Active Substance: HUMAN IMMUNOGLOBULIN G
     Dosage: UNK
     Route: 064
  8. CEFAZOLIN SODIUM [Suspect]
     Active Substance: CEFAZOLIN SODIUM
     Indication: Product used for unknown indication
     Dosage: UNK
     Route: 064
  9. VITAMIN B COMPLEX [Suspect]
     Active Substance: CYANOCOBALAMIN\DEXPANTHENOL\NIACINAMIDE\PYRIDOXINE HYDROCHLORIDE\RIBOFLAVIN 5^-PHOSPHATE SODIUM\THIA
     Indication: Product used for unknown indication
     Dosage: UNK
     Route: 064
     Dates: start: 20180326
  10. MAGNESIUM LACTATE [Suspect]
     Active Substance: MAGNESIUM LACTATE
     Indication: Product used for unknown indication
     Dosage: UNK
     Route: 064
     Dates: start: 20180321, end: 20180405
  11. HYDROXYCHLOROQUINE [Suspect]
     Active Substance: HYDROXYCHLOROQUINE
     Indication: Product used for unknown indication
     Dosage: UNK
     Route: 064
     Dates: start: 20180222
  12. PENICILLIN G SODIUM [Suspect]
     Active Substance: PENICILLIN G SODIUM
     Indication: Product used for unknown indication
     Dosage: UNK
     Route: 064
     Dates: start: 20180224, end: 20180308
  13. FLUCONAZOLE [Suspect]
     Active Substance: FLUCONAZOLE
     Indication: Product used for unknown indication
     Dosage: UNK
     Route: 064
     Dates: start: 20180227, end: 20180320
  14. BISULEPIN [Suspect]
     Active Substance: BISULEPIN
     Indication: Product used for unknown indication
     Dosage: UNK
     Route: 064
     Dates: start: 20180327, end: 20180327
  15. DEXAMETHASONE [Suspect]
     Active Substance: DEXAMETHASONE
     Indication: Product used for unknown indication
     Dosage: UNK
     Route: 064
     Dates: start: 20180228, end: 20180302
  16. DEXAMETHASONE [Suspect]
     Active Substance: DEXAMETHASONE
     Dosage: UNK
     Route: 064
     Dates: start: 20180309, end: 20190504
  17. NADROPARIN [Suspect]
     Active Substance: NADROPARIN
     Indication: Product used for unknown indication
     Dosage: UNK
     Route: 064
     Dates: start: 20180222, end: 20180226
  18. CEFIXIME [Suspect]
     Active Substance: CEFIXIME
     Indication: Product used for unknown indication
     Dosage: UNK
     Route: 064
  19. CEFIXIME [Suspect]
     Active Substance: CEFIXIME
     Dosage: UNK
     Route: 064
  20. CALCIUM CARBONATE [Suspect]
     Active Substance: CALCIUM CARBONATE
     Indication: Product used for unknown indication
     Dosage: UNK
     Route: 064
     Dates: start: 20180223
  21. PRIVIGEN [Suspect]
     Active Substance: HUMAN IMMUNOGLOBULIN G
     Indication: Product used for unknown indication
     Dosage: UNK
     Route: 064
  22. PRIVIGEN [Suspect]
     Active Substance: HUMAN IMMUNOGLOBULIN G
     Dosage: UNK
     Route: 064
  23. BISOPROLOL FUMARATE [Suspect]
     Active Substance: BISOPROLOL FUMARATE
     Indication: Product used for unknown indication
     Dosage: UNK
     Route: 064
     Dates: start: 20180223, end: 20180327
  24. ORNIDAZOLE [Suspect]
     Active Substance: ORNIDAZOLE
     Indication: Product used for unknown indication
     Dosage: UNK
     Route: 064
  25. FOLIC ACID [Suspect]
     Active Substance: FOLIC ACID
     Indication: Product used for unknown indication
     Dosage: UNK
     Route: 064
     Dates: start: 20180222
  26. METHYLPREDNISOLONE [Suspect]
     Active Substance: METHYLPREDNISOLONE
     Indication: Product used for unknown indication
     Dosage: UNK
     Route: 064
     Dates: start: 20180221, end: 20180223
  27. METHYLPREDNISOLONE [Suspect]
     Active Substance: METHYLPREDNISOLONE
     Dosage: UNK
     Route: 064
  28. AMINOMETHYLBENZOIC ACID [Suspect]
     Active Substance: AMINOMETHYLBENZOIC ACID
     Indication: Product used for unknown indication
     Dosage: UNK
     Route: 064
     Dates: start: 20180227, end: 20180311
  29. OMEPRAZOLE [Suspect]
     Active Substance: OMEPRAZOLE
     Indication: Product used for unknown indication
     Dosage: UNK
     Route: 064
     Dates: start: 20180222
  30. CEFOTAXIME [Suspect]
     Active Substance: CEFOTAXIME SODIUM
     Indication: Product used for unknown indication
     Dosage: UNK
     Route: 064
     Dates: start: 20180319, end: 20180329
  31. CEFOTAXIME [Suspect]
     Active Substance: CEFOTAXIME SODIUM
     Dosage: UNK, STARTED ON 12 APR 2018
     Route: 064
     Dates: end: 20180427
  32. METOPROLOL TARTRATE [Suspect]
     Active Substance: METOPROLOL TARTRATE
     Indication: Product used for unknown indication
     Dosage: UNK
     Route: 064
  33. ALBUMIN (HUMAN) [Suspect]
     Active Substance: ALBUMIN HUMAN
     Indication: Product used for unknown indication
     Dosage: UNK
     Route: 064
     Dates: start: 20180327, end: 20180329
  34. ACETAMINOPHEN [Suspect]
     Active Substance: ACETAMINOPHEN
     Indication: Product used for unknown indication
     Dosage: UNK
     Route: 064
     Dates: start: 20180222, end: 20180403
  35. VITAMIN K [Suspect]
     Active Substance: PHYTONADIONE
     Indication: Product used for unknown indication
     Dosage: UNK
     Route: 064
     Dates: start: 20180227, end: 20180309

REACTIONS (3)
  - Foetal growth restriction [Unknown]
  - Premature baby [Unknown]
  - Foetal exposure during pregnancy [Unknown]

NARRATIVE: CASE EVENT DATE: 20180404
